FAERS Safety Report 15825290 (Version 1)
Quarter: 2019Q1

REPORT INFORMATION
  Report Type: Report from Study
  Country: US (occurrence: US)
  Receive Date: 20190115
  Receipt Date: 20190115
  Transmission Date: 20190417
  Serious: Yes (Life-Threatening, Hospitalization, Other)
  Sender: FDA-Public Use
  Company Number: US-ROCHE-1612598

PATIENT
  Age: 35 Year
  Sex: Female
  Weight: 72.2 kg

DRUGS (15)
  1. RITUXIMAB. [Suspect]
     Active Substance: RITUXIMAB
     Route: 042
     Dates: start: 20150826
  2. RITUXIMAB. [Suspect]
     Active Substance: RITUXIMAB
     Indication: FIBRILLARY GLOMERULONEPHRITIS
     Route: 042
     Dates: start: 20150218, end: 20150218
  3. OXYCODONE [Concomitant]
     Active Substance: OXYCODONE
     Dosage: AS NEEDED
     Route: 065
  4. RIZATRIPTAN. [Concomitant]
     Active Substance: RIZATRIPTAN
  5. FUROSEMIDE. [Concomitant]
     Active Substance: FUROSEMIDE
  6. METOLAZONE. [Concomitant]
     Active Substance: METOLAZONE
     Route: 048
  7. RITUXIMAB. [Suspect]
     Active Substance: RITUXIMAB
     Route: 042
     Dates: start: 20150811
  8. ALBUTEROL. [Concomitant]
     Active Substance: ALBUTEROL
     Indication: ASTHMA
     Dosage: 0.0837
     Route: 065
  9. SYMBICORT [Concomitant]
     Active Substance: BUDESONIDE\FORMOTEROL FUMARATE DIHYDRATE
     Dosage: 160 TO 4.5 MCG
     Route: 065
  10. MAXALT [Concomitant]
     Active Substance: RIZATRIPTAN BENZOATE
     Indication: MIGRAINE
     Route: 048
  11. CLOPIDOGREL [Concomitant]
     Active Substance: CLOPIDOGREL BISULFATE
     Route: 048
  12. RITUXIMAB. [Suspect]
     Active Substance: RITUXIMAB
     Route: 042
     Dates: start: 20150304, end: 20150304
  13. BENZOYL PEROXIDE. [Concomitant]
     Active Substance: BENZOYL PEROXIDE
  14. LASIX [Concomitant]
     Active Substance: FUROSEMIDE
  15. AMLODIPIN [Concomitant]
     Active Substance: AMLODIPINE BESYLATE
     Indication: HYPERTENSION
     Route: 048

REACTIONS (5)
  - Hypoaesthesia [Unknown]
  - Tremor [Recovered/Resolved]
  - Blood potassium increased [Recovered/Resolved]
  - Cerebral infarction [Recovered/Resolved]
  - Ischaemic stroke [Recovered/Resolved]

NARRATIVE: CASE EVENT DATE: 20150711
